FAERS Safety Report 4897778-X (Version None)
Quarter: 2006Q1

REPORT INFORMATION
  Report Type: 
  Country: None (occurrence: None)
  Receive Date: 20060201
  Receipt Date: 20060119
  Transmission Date: 20060701
  Serious: Yes (Hospitalization)
  Sender: FDA-Public Use
  Company Number: DE-JNJFOC-20051002297

PATIENT
  Sex: Female
  Weight: 50 kg

DRUGS (7)
  1. IMODIUM [Suspect]
     Indication: SUICIDAL IDEATION
     Route: 048
  2. GELONIDA [Suspect]
     Route: 048
  3. GELONIDA [Suspect]
     Indication: SUICIDAL IDEATION
     Route: 048
  4. IBUPROFEN [Suspect]
     Indication: SUICIDAL IDEATION
     Dosage: 20 TABLETS.
     Route: 048
  5. LARIAM [Suspect]
     Indication: SUICIDAL IDEATION
     Dosage: 16 TABLETS.
     Route: 048
  6. TALVOSILEN [Suspect]
     Route: 048
  7. TALVOSILEN [Suspect]
     Indication: SUICIDAL IDEATION
     Route: 048

REACTIONS (4)
  - LIVER FUNCTION TEST ABNORMAL [None]
  - OVERDOSE [None]
  - SOMNOLENCE [None]
  - SUICIDAL IDEATION [None]
